FAERS Safety Report 7300543-7 (Version None)
Quarter: 2011Q1

REPORT INFORMATION
  Report Type: 
  Country: None (occurrence: None)
  Receive Date: 20110218
  Receipt Date: 20110210
  Transmission Date: 20110831
  Serious: Yes (Hospitalization)
  Sender: FDA-Public Use
  Company Number: US-BIOGENIDEC-2010BI040916

PATIENT
  Age: 58 Year
  Sex: Female

DRUGS (2)
  1. MEDICATIONS (NOS) [Concomitant]
  2. AVONEX [Suspect]
     Indication: MULTIPLE SCLEROSIS
     Route: 030
     Dates: start: 20100805, end: 20101025

REACTIONS (8)
  - FALL [None]
  - COMA [None]
  - DRUG INTERACTION [None]
  - ADVERSE DRUG REACTION [None]
  - HALLUCINATION [None]
  - HEAD INJURY [None]
  - INTRACRANIAL ANEURYSM [None]
  - CEREBRAL THROMBOSIS [None]
